FAERS Safety Report 19467468 (Version 1)
Quarter: 2021Q2

REPORT INFORMATION
  Report Type: Spontaneous
  Country: US (occurrence: US)
  Receive Date: 20210627
  Receipt Date: 20210627
  Transmission Date: 20210717
  Serious: Yes (Hospitalization)
  Sender: FDA-Public Use
  Company Number: None

PATIENT
  Age: 41 Year
  Sex: Female
  Weight: 90.45 kg

DRUGS (6)
  1. BLISOVI [Concomitant]
     Active Substance: ETHINYL ESTRADIOL\NORETHINDRONE ACETATE
  2. BIOTIN [Suspect]
     Active Substance: BIOTIN
  3. PLUS KERATIN [Concomitant]
  4. LISINOPRIL. [Suspect]
     Active Substance: LISINOPRIL
     Indication: HYPERTENSION
     Dosage: QUANTITY:1 TABLET(S);?
     Route: 048
     Dates: start: 20210506, end: 20210507
  5. SYNTHROID [Concomitant]
     Active Substance: LEVOTHYROXINE SODIUM
  6. WOMEN^S DAILY MULTIVITAMIN [Concomitant]

REACTIONS (10)
  - Hypotension [None]
  - Hyperhidrosis [None]
  - Dizziness [None]
  - Leukocytosis [None]
  - Acute kidney injury [None]
  - Vomiting [None]
  - Hyperkalaemia [None]
  - Nausea [None]
  - Abdominal pain upper [None]
  - Diarrhoea [None]

NARRATIVE: CASE EVENT DATE: 20210507
